FAERS Safety Report 21593777 (Version 1)
Quarter: 2022Q4

REPORT INFORMATION
  Report Type: Spontaneous
  Country: US (occurrence: None)
  Receive Date: 20221114
  Receipt Date: 20221114
  Transmission Date: 20230113
  Serious: Yes (Hospitalization)
  Sender: FDA-Public Use
  Company Number: None

PATIENT
  Age: 67 Year
  Sex: Male
  Weight: 77.7 kg

DRUGS (20)
  1. TASIGNA [Suspect]
     Active Substance: NILOTINIB
     Indication: Chronic myeloid leukaemia
     Dosage: FREQUENCY : TWICE A DAY;?
     Route: 048
     Dates: start: 202210
  2. AMLODIPINE [Concomitant]
     Active Substance: AMLODIPINE BESYLATE
  3. ASPIRIN [Concomitant]
     Active Substance: ASPIRIN
  4. ATORVASTATIN [Concomitant]
     Active Substance: ATORVASTATIN
  5. CEPHALEXIN [Concomitant]
     Active Substance: CEPHALEXIN
  6. CHLORTHALIDONE [Concomitant]
     Active Substance: CHLORTHALIDONE
  7. CILOSTAZOL [Concomitant]
     Active Substance: CILOSTAZOL
  8. CYCLOBENZAPRINE [Concomitant]
     Active Substance: CYCLOBENZAPRINE
  9. GABAPENTIN [Concomitant]
     Active Substance: GABAPENTIN
  10. HYDRALAZINE [Concomitant]
     Active Substance: HYDRALAZINE HYDROCHLORIDE
  11. ISOSORBIDE [Concomitant]
     Active Substance: ISOSORBIDE
  12. JANUEMT XR [Concomitant]
  13. LEVOTHYROXINE [Concomitant]
  14. LIDOCAINE [Concomitant]
     Active Substance: LIDOCAINE
  15. LISINOPRIL [Concomitant]
     Active Substance: LISINOPRIL
  16. METHOCARBAMOL [Concomitant]
     Active Substance: METHOCARBAMOL
  17. METOPROLOL [Concomitant]
     Active Substance: METOPROLOL
  18. NAPROXEN [Concomitant]
     Active Substance: NAPROXEN
  19. OZEMPIC [Concomitant]
     Active Substance: SEMAGLUTIDE
  20. TRAMADOL [Concomitant]
     Active Substance: TRAMADOL

REACTIONS (1)
  - Chronic myelomonocytic leukaemia [None]

NARRATIVE: CASE EVENT DATE: 20221107
